FAERS Safety Report 9642592 (Version 1)
Quarter: 2013Q4

REPORT INFORMATION
  Report Type: Spontaneous
  Country: US (occurrence: US)
  Receive Date: 20131024
  Receipt Date: 20131024
  Transmission Date: 20140711
  Serious: Yes (Other)
  Sender: FDA-Public Use
  Company Number: US-PFIZER INC-2013302250

PATIENT
  Age: 59 Year
  Sex: Female
  Weight: 60.77 kg

DRUGS (3)
  1. TIKOSYN [Suspect]
     Indication: ATRIAL FIBRILLATION
     Dosage: 500 UG, 2X/DAY
     Dates: start: 20130724
  2. CYTOMEL [Concomitant]
     Indication: HYPERTHYROIDISM
     Dosage: 5 UG, 6X/DAY
  3. SYNTHROID [Concomitant]
     Indication: HYPERTHYROIDISM
     Dosage: 25MCG IN MORNING, HALF OF 25MCG TABLET IN AFTERNOON AND THEN 37.5MCG IN EVENING

REACTIONS (6)
  - Electrocardiogram QT interval abnormal [Recovered/Resolved]
  - Headache [Recovering/Resolving]
  - Nausea [Recovering/Resolving]
  - Dizziness [Recovered/Resolved]
  - Excoriation [Recovering/Resolving]
  - Vasodilatation [Recovering/Resolving]
